FAERS Safety Report 5583326-8 (Version None)
Quarter: 2008Q1

REPORT INFORMATION
  Report Type: 
  Country: None (occurrence: None)
  Receive Date: 20080107
  Receipt Date: 20071226
  Transmission Date: 20080703
  Serious: Yes (Other)
  Sender: FDA-Public Use
  Company Number: US-PFIZER INC-2007108643

PATIENT
  Sex: Female
  Weight: 45.4 kg

DRUGS (2)
  1. LYRICA [Suspect]
     Indication: FIBROMYALGIA
  2. CYMBALTA [Suspect]
     Indication: SMOKING CESSATION THERAPY

REACTIONS (2)
  - INCOHERENT [None]
  - LOSS OF CONSCIOUSNESS [None]
